FAERS Safety Report 8484793-2 (Version None)
Quarter: 2012Q3

REPORT INFORMATION
  Report Type: 
  Country: None (occurrence: None)
  Receive Date: 20120703
  Receipt Date: 20120625
  Transmission Date: 20120928
  Serious: Yes (Hospitalization)
  Sender: FDA-Public Use
  Company Number: US-BAYER-2012-063848

PATIENT
  Age: 22 Year
  Sex: Female

DRUGS (3)
  1. YASMIN [Suspect]
  2. VALTREX [Concomitant]
     Indication: HEPATIC LESION
     Dosage: 2 G, BID
     Dates: start: 20080416
  3. ORTHO TRI-CYCLEN [Concomitant]

REACTIONS (1)
  - DEEP VEIN THROMBOSIS [None]
